FAERS Safety Report 4368106-3 (Version None)
Quarter: 2004Q2

REPORT INFORMATION
  Report Type: 
  Country: None (occurrence: None)
  Receive Date: 20040602
  Receipt Date: 20040428
  Transmission Date: 20050107
  Serious: Yes (Other)
  Sender: FDA-Public Use
  Company Number: JP-BRISTOL-MYERS SQUIBB COMPANY-12585808

PATIENT
  Age: 74 Year
  Sex: Male

DRUGS (12)
  1. GATIFLO TABS [Suspect]
     Indication: PNEUMONIA
     Route: 048
     Dates: start: 20040206, end: 20040406
  2. PREDONINE [Suspect]
     Route: 048
     Dates: start: 20020719
  3. CRAVIT [Concomitant]
     Route: 048
     Dates: start: 20040109
  4. CLARITH [Concomitant]
     Route: 048
     Dates: start: 20020301
  5. THEO-DUR [Concomitant]
     Route: 048
     Dates: start: 20010828
  6. AMOBAN [Concomitant]
     Route: 048
     Dates: start: 20010606
  7. GASTER D [Concomitant]
     Route: 048
     Dates: start: 20020219
  8. ADALAT [Concomitant]
     Route: 048
     Dates: start: 20010606
  9. BENZALIN [Concomitant]
     Route: 048
     Dates: start: 20040220
  10. THYRADIN S [Concomitant]
     Route: 048
     Dates: start: 20030319
  11. DIOVAN [Concomitant]
     Route: 048
     Dates: start: 20010211
  12. VASOMET [Concomitant]
     Route: 048
     Dates: start: 20010808

REACTIONS (1)
  - HYPERGLYCAEMIA [None]
